FAERS Safety Report 20736650 (Version 1)
Quarter: 2022Q2

REPORT INFORMATION
  Report Type: Spontaneous
  Country: US (occurrence: US)
  Receive Date: 20220421
  Receipt Date: 20220421
  Transmission Date: 20220721
  Serious: Yes (Other)
  Sender: FDA-Public Use
  Company Number: US-CELGENE-USA-20220104995

PATIENT
  Age: 78 Year
  Sex: Male

DRUGS (1)
  1. POMALYST [Suspect]
     Active Substance: POMALIDOMIDE
     Indication: Plasma cell myeloma
     Dosage: 2 MILLIGRAM
     Route: 048
     Dates: start: 202109

REACTIONS (3)
  - Neuropathy peripheral [Not Recovered/Not Resolved]
  - Monoclonal immunoglobulin present [Unknown]
  - Pruritus [Unknown]

NARRATIVE: CASE EVENT DATE: 20211213
